FAERS Safety Report 8841016 (Version 2)
Quarter: 2015Q3

REPORT INFORMATION
  Report Type: Report from Study
  Country: US (occurrence: US)
  Receive Date: 20121015
  Receipt Date: 20150812
  Transmission Date: 20151125
  Serious: Yes (Other)
  Sender: FDA-Public Use
  Company Number: US-ROCHE-1127252

PATIENT
  Sex: Female
  Weight: 32.4 kg

DRUGS (2)
  1. NUTROPIN [Suspect]
     Active Substance: SOMATROPIN
     Indication: CHRONIC KIDNEY DISEASE
     Dosage: 11.2 MG/KG/WK,7 INJECTION PER WEEK, DOSE PER INJECTION 0.32 ML
     Route: 058
     Dates: start: 19980515
  2. NUTROPIN [Suspect]
     Active Substance: SOMATROPIN
     Indication: AZOTAEMIA

REACTIONS (1)
  - Transplant failure [Unknown]
